FAERS Safety Report 8216195-8 (Version None)
Quarter: 2012Q1

REPORT INFORMATION
  Report Type: 
  Country: None (occurrence: None)
  Receive Date: 20120316
  Receipt Date: 20120312
  Transmission Date: 20120608
  Serious: Yes (Hospitalization)
  Sender: FDA-Public Use
  Company Number: US-GLAXOSMITHKLINE-A0970028A

PATIENT
  Age: 59 Year
  Sex: Female
  Weight: 60.2 kg

DRUGS (4)
  1. CARBOPLATIN [Suspect]
     Indication: BREAST CANCER
     Dates: start: 20111207
  2. DOCETAXEL [Suspect]
     Indication: BREAST CANCER
     Dates: start: 20111207
  3. LAPATINIB [Suspect]
     Indication: BREAST CANCER
     Dosage: 1000MG PER DAY
     Route: 048
     Dates: start: 20111116
  4. TRASTUZUMAB [Suspect]
     Indication: BREAST CANCER
     Dates: start: 20111116

REACTIONS (1)
  - BLOOD CREATININE INCREASED [None]
